FAERS Safety Report 12912391 (Version 2)
Quarter: 2017Q1

REPORT INFORMATION
  Report Type: Spontaneous
  Country: US (occurrence: US)
  Receive Date: 20161104
  Receipt Date: 20170113
  Transmission Date: 20170428
  Serious: Yes (Hospitalization)
  Sender: FDA-Public Use
  Company Number: US-JNJFOC-20161100495

PATIENT
  Sex: Male
  Weight: 88.45 kg

DRUGS (3)
  1. RISPERDAL CONSTA [Suspect]
     Active Substance: RISPERIDONE
     Indication: PRODUCT USED FOR UNKNOWN INDICATION
     Route: 030
     Dates: end: 2016
  2. RISPERIDONE. [Suspect]
     Active Substance: RISPERIDONE
     Indication: PRODUCT USED FOR UNKNOWN INDICATION
     Route: 048
  3. RISPERDAL [Suspect]
     Active Substance: RISPERIDONE
     Indication: PRODUCT USED FOR UNKNOWN INDICATION
     Dosage: FOR ABOUT 6-9 MONTHS
     Route: 048
     Dates: start: 2011

REACTIONS (16)
  - Renal failure [Unknown]
  - Weight decreased [Unknown]
  - Breast pain [Unknown]
  - Feeling abnormal [Unknown]
  - Seasonal allergy [Unknown]
  - Myalgia [Unknown]
  - Heat stroke [Unknown]
  - Schizoaffective disorder [Unknown]
  - Chronic obstructive pulmonary disease [Not Recovered/Not Resolved]
  - Hypertension [Not Recovered/Not Resolved]
  - Weight increased [Recovered/Resolved]
  - Gynaecomastia [Not Recovered/Not Resolved]
  - Erectile dysfunction [Unknown]
  - Diabetes mellitus [Recovered/Resolved]
  - Bowel movement irregularity [Unknown]
  - Fatigue [Unknown]

NARRATIVE: CASE EVENT DATE: 2016
